FAERS Safety Report 12145929 (Version 1)
Quarter: 2016Q1

REPORT INFORMATION
  Report Type: Spontaneous
  Country: IT (occurrence: IT)
  Receive Date: 20160304
  Receipt Date: 20160304
  Transmission Date: 20160526
  Serious: Yes (Other)
  Sender: FDA-Public Use
  Company Number: IT-JNJFOC-20160300173

PATIENT
  Age: 53 Year
  Sex: Male

DRUGS (2)
  1. HALDOL [Suspect]
     Active Substance: HALOPERIDOL
     Indication: PRODUCT USED FOR UNKNOWN INDICATION
     Route: 048
     Dates: start: 20160228, end: 20160228
  2. ALCOHOL. [Suspect]
     Active Substance: ALCOHOL
     Indication: PRODUCT USED FOR UNKNOWN INDICATION
     Dosage: 3 BOTTLES OF BEER
     Route: 048

REACTIONS (3)
  - Intentional overdose [Unknown]
  - Trismus [Unknown]
  - Drug abuse [Unknown]

NARRATIVE: CASE EVENT DATE: 20160228
